FAERS Safety Report 13392975 (Version 1)
Quarter: 2017Q1

REPORT INFORMATION
  Report Type: Spontaneous
  Country: IT (occurrence: IT)
  Receive Date: 20170331
  Receipt Date: 20170331
  Transmission Date: 20170429
  Serious: Yes (Death)
  Sender: FDA-Public Use
  Company Number: IT-SA-2017SA055215

PATIENT
  Age: 81 Year
  Sex: Female

DRUGS (1)
  1. ENOXAPARIN SODIUM. [Suspect]
     Active Substance: ENOXAPARIN SODIUM
     Indication: DEEP VEIN THROMBOSIS
     Route: 065

REACTIONS (8)
  - Dyspnoea [Unknown]
  - Heparin-induced thrombocytopenia [Recovering/Resolving]
  - Paraparesis [Unknown]
  - Reperfusion injury [Fatal]
  - Pulmonary embolism [Unknown]
  - Intestinal ischaemia [Fatal]
  - Aortic occlusion [Unknown]
  - Pain in extremity [Unknown]
